FAERS Safety Report 5522586-6 (Version None)
Quarter: 2007Q4

REPORT INFORMATION
  Report Type: 
  Country: None (occurrence: None)
  Receive Date: 20071120
  Receipt Date: 20071108
  Transmission Date: 20080405
  Serious: Yes (Other)
  Sender: FDA-Public Use
  Company Number: FR-PFIZER INC-2007094477

PATIENT
  Age: 58 Year
  Sex: Female

DRUGS (3)
  1. CELEBREX [Suspect]
     Indication: OSTEOARTHRITIS
     Dosage: DAILY DOSE:200MG
  2. ALL OTHER THERAPEUTIC PRODUCTS [Concomitant]
  3. BROMAZEPAM [Concomitant]

REACTIONS (2)
  - 5'NUCLEOTIDASE INCREASED [None]
  - TRANSAMINASES INCREASED [None]
